FAERS Safety Report 5215921-X (Version None)
Quarter: 2007Q1

REPORT INFORMATION
  Report Type: 
  Country: None (occurrence: None)
  Receive Date: 20070123
  Receipt Date: 20070119
  Transmission Date: 20070707
  Serious: Yes (Death, Disabling)
  Sender: FDA-Public Use
  Company Number: JP-BRISTOL-MYERS SQUIBB COMPANY-13625744

PATIENT
  Age: 67 Year
  Sex: Female

DRUGS (2)
  1. PARAPLATIN [Suspect]
     Indication: UTERINE CANCER
     Route: 041
     Dates: start: 20061225, end: 20061225
  2. TAXOL [Suspect]
     Indication: UTERINE CANCER
     Route: 041
     Dates: start: 20070101, end: 20070101

REACTIONS (3)
  - GASTROINTESTINAL HAEMORRHAGE [None]
  - PLATELET COUNT DECREASED [None]
  - RENAL FAILURE ACUTE [None]
